FAERS Safety Report 4626556-1 (Version None)
Quarter: 2005Q1

REPORT INFORMATION
  Report Type: 
  Country: None (occurrence: None)
  Receive Date: 20050330
  Receipt Date: 20050314
  Transmission Date: 20050727
  Serious: Yes (Hospitalization, Other)
  Sender: FDA-Public Use
  Company Number: USA050393159

PATIENT
  Age: 72 Year
  Sex: Female

DRUGS (6)
  1. FORTEO [Suspect]
     Indication: OSTEOPOROSIS
     Dates: start: 20040401
  2. CALCIUM GLUCONATE [Concomitant]
  3. LEVOTHROID [Concomitant]
  4. VITAMINS [Concomitant]
  5. TARKA [Concomitant]
  6. PLAVIX [Concomitant]

REACTIONS (4)
  - FALL [None]
  - HIP FRACTURE [None]
  - PAIN IN EXTREMITY [None]
  - PHARMACEUTICAL PRODUCT COMPLAINT [None]
